FAERS Safety Report 9035602 (Version 1)
Quarter: 2013Q1

REPORT INFORMATION
  Report Type: Report from Study
  Country: US (occurrence: US)
  Receive Date: 20130129
  Receipt Date: 20130129
  Transmission Date: 20140127
  Serious: Yes (Hospitalization, Other)
  Sender: FDA-Public Use
  Company Number: US-ABBOTT-12P-163-0900177-00

PATIENT
  Age: 59 None
  Sex: Female
  Weight: 64.92 kg

DRUGS (6)
  1. HUMIRA 40 MG/0.8 ML PEN [Suspect]
     Indication: ANKYLOSING SPONDYLITIS
     Dates: start: 20110320, end: 20110901
  2. HUMIRA 40 MG/0.8 ML PEN [Suspect]
     Indication: COLITIS ULCERATIVE
     Dates: start: 20111201, end: 20111213
  3. ASACOL [Concomitant]
     Indication: COLITIS ULCERATIVE
  4. NEURONTIN [Concomitant]
     Indication: NEURALGIA
     Dates: start: 201112
  5. MERCAPTOPURINE [Concomitant]
     Indication: ANKYLOSING SPONDYLITIS
     Dates: start: 201112
  6. 6-MP [Concomitant]
     Indication: PRODUCT USED FOR UNKNOWN INDICATION

REACTIONS (7)
  - Herpes zoster cutaneous disseminated [Recovered/Resolved]
  - Skin burning sensation [Recovered/Resolved]
  - Palpitations [Recovered/Resolved]
  - Pain [Not Recovered/Not Resolved]
  - Chest pain [Unknown]
  - Dyspnoea [Unknown]
  - Painful respiration [Unknown]
